FAERS Safety Report 23321745 (Version 1)
Quarter: 2023Q4

REPORT INFORMATION
  Report Type: Spontaneous
  Country: CN (occurrence: CN)
  Receive Date: 20231220
  Receipt Date: 20231220
  Transmission Date: 20240110
  Serious: Yes (Disabling, Other)
  Sender: FDA-Public Use
  Company Number: CN-009507513-2312CHN007121

PATIENT
  Age: 42 Year
  Sex: Female

DRUGS (2)
  1. LAGEVRIO [Suspect]
     Active Substance: MOLNUPIRAVIR
     Indication: COVID-19
     Dosage: 8 G, QD, ORAL
     Route: 048
     Dates: start: 20231129, end: 20231129
  2. LEVOFLOXACIN [Suspect]
     Active Substance: LEVOFLOXACIN
     Indication: Pancreatitis acute
     Dosage: 0.5 G, QD, IV DRIP
     Route: 041
     Dates: start: 20231129, end: 20231130

REACTIONS (3)
  - Hepatic function abnormal [Unknown]
  - Inappropriate schedule of product administration [Unknown]
  - Overdose [Unknown]

NARRATIVE: CASE EVENT DATE: 20231129
